FAERS Safety Report 9998923 (Version 1)
Quarter: 2014Q1

REPORT INFORMATION
  Report Type: Spontaneous
  Country: JP (occurrence: None)
  Receive Date: 20140310
  Receipt Date: 20140310
  Transmission Date: 20141002
  Serious: Yes (Death)
  Sender: FDA-Public Use
  Company Number: 2014P1001838

PATIENT
  Age: 72 Year
  Sex: Male

DRUGS (1)
  1. METHYLPREDNISOLONE [Suspect]
     Indication: ACUTE FEBRILE NEUTROPHILIC DERMATOSIS

REACTIONS (3)
  - Respiratory failure [None]
  - Meningitis cryptococcal [None]
  - Immune reconstitution inflammatory syndrome [None]
